APPROVED DRUG PRODUCT: TOBRAMYCIN SULFATE
Active Ingredient: TOBRAMYCIN SULFATE
Strength: EQ 40MG BASE/ML
Dosage Form/Route: INJECTABLE;INJECTION
Application: A063100 | Product #001
Applicant: TEVA PHARMACEUTICALS USA
Approved: Jan 30, 1992 | RLD: No | RS: No | Type: DISCN